FAERS Safety Report 7628225-2 (Version None)
Quarter: 2011Q3

REPORT INFORMATION
  Report Type: 
  Country: None (occurrence: None)
  Receive Date: 20110720
  Receipt Date: 20110720
  Transmission Date: 20111222
  Serious: No
  Sender: FDA-Public Use
  Company Number: None

PATIENT
  Sex: Male
  Weight: 88.905 kg

DRUGS (1)
  1. TRILEPTAL [Suspect]

REACTIONS (4)
  - ABDOMINAL PAIN UPPER [None]
  - DRY MOUTH [None]
  - EPISTAXIS [None]
  - HEADACHE [None]
